FAERS Safety Report 10373468 (Version 2)
Quarter: 2014Q3

REPORT INFORMATION
  Report Type: Spontaneous
  Country: JP (occurrence: JP)
  Receive Date: 20140808
  Receipt Date: 20140808
  Transmission Date: 20150326
  Serious: Yes (Life-Threatening, Other)
  Sender: FDA-Public Use
  Company Number: JP-PFIZER INC-2014193204

PATIENT
  Age: 68 Year
  Sex: Female

DRUGS (5)
  1. PRANLUKAST [Concomitant]
     Active Substance: PRANLUKAST
     Dosage: UNK
     Dates: start: 20140607
  2. ADOAIR [Concomitant]
     Active Substance: FLUTICASONE PROPIONATE\SALMETEROL XINAFOATE
     Dosage: UNK
     Dates: start: 20120607
  3. TIOTROPIUM BROMIDE [Concomitant]
     Active Substance: TIOTROPIUM BROMIDE
     Dosage: UNK
     Dates: start: 20130310
  4. INTAL [Suspect]
     Active Substance: CROMOLYN SODIUM
     Indication: ASTHMA
     Dosage: 1 AMPULE OF INTAL NEBULISER SOLUTION 1%
     Route: 055
     Dates: start: 201209, end: 20140701
  5. MEPTIN [Concomitant]
     Active Substance: PROCATEROL HYDROCHLORIDE
     Dosage: 0.3 ML, UNK
     Route: 055

REACTIONS (9)
  - Wheezing [Recovering/Resolving]
  - Restlessness [Recovering/Resolving]
  - Feeling abnormal [Recovering/Resolving]
  - Anaphylactic reaction [Recovering/Resolving]
  - Cough [Recovering/Resolving]
  - Oxygen saturation decreased [Recovering/Resolving]
  - Pruritus [Recovering/Resolving]
  - Flushing [Recovering/Resolving]
  - Sneezing [Recovering/Resolving]

NARRATIVE: CASE EVENT DATE: 20140701
